FAERS Safety Report 19907150 (Version 1)
Quarter: 2021Q4

REPORT INFORMATION
  Report Type: Spontaneous
  Country: US (occurrence: US)
  Receive Date: 20211001
  Receipt Date: 20211001
  Transmission Date: 20220303
  Serious: Yes (Hospitalization, Other)
  Sender: FDA-Public Use
  Company Number: US-TEVA-2021-US-1960322

PATIENT
  Age: 28 Year
  Sex: Female
  Weight: 102 kg

DRUGS (24)
  1. ACETAMINOPHEN\HYDROCODONE [Suspect]
     Active Substance: ACETAMINOPHEN\HYDROCODONE
     Indication: Pain
     Dosage: 1-2 DOSAGE FORM A DAY
     Route: 065
     Dates: start: 201508
  2. ACETAMINOPHEN\OXYCODONE HYDROCHLORIDE [Suspect]
     Active Substance: ACETAMINOPHEN\OXYCODONE HYDROCHLORIDE
     Indication: Pain
     Dosage: 5/325MG, ONCE EVERY 6 HOURS
     Route: 048
     Dates: start: 20161119
  3. CLONAZEPAM [Suspect]
     Active Substance: CLONAZEPAM
     Dosage: 3 MILLIGRAM DAILY;
     Route: 065
     Dates: start: 201604
  4. DIAZEPAM [Suspect]
     Active Substance: DIAZEPAM
     Route: 065
     Dates: start: 201511
  5. GABAPENTIN [Suspect]
     Active Substance: GABAPENTIN
     Route: 065
     Dates: start: 20150811
  6. FIORICET [Suspect]
     Active Substance: ACETAMINOPHEN\BUTALBITAL\CAFFEINE
     Indication: Migraine
     Dosage: 2 DOSAGE FORMS DAILY;
     Route: 065
     Dates: start: 201506
  7. FIORICET [Suspect]
     Active Substance: ACETAMINOPHEN\BUTALBITAL\CAFFEINE
     Dosage: SUSPECT MEDICATION WAS TAKEN BY FATHER
     Route: 050
  8. OXYCODONE [Suspect]
     Active Substance: OXYCODONE
     Indication: Pain
     Dosage: DAILY
     Route: 065
     Dates: start: 2006, end: 2018
  9. OXYCODONE [Suspect]
     Active Substance: OXYCODONE
     Dosage: SUSPECT MEDICATION WAS TAKEN BY FATHER
     Route: 050
  10. NORCO [Suspect]
     Active Substance: ACETAMINOPHEN\HYDROCODONE BITARTRATE
     Indication: Pain
     Route: 065
     Dates: start: 2008, end: 2016
  11. SUBUTEX [Suspect]
     Active Substance: BUPRENORPHINE HYDROCHLORIDE
     Indication: Pain
     Dosage: 16 MILLIGRAM DAILY;
     Route: 048
     Dates: start: 201107
  12. SUBOXONE [Suspect]
     Active Substance: BUPRENORPHINE HYDROCHLORIDE\NALOXONE HYDROCHLORIDE
     Indication: Pain
     Route: 060
     Dates: start: 201107
  13. BUPRENORPHINE [Suspect]
     Active Substance: BUPRENORPHINE
     Indication: Pain
     Dosage: 16 MILLIGRAM DAILY;
     Route: 060
     Dates: start: 201107
  14. KADIAN [Suspect]
     Active Substance: MORPHINE SULFATE
     Indication: Pain
     Route: 065
  15. PROMETHAZINE HYDROCHLORIDE [Suspect]
     Active Substance: PROMETHAZINE HYDROCHLORIDE
     Dosage: 1 DOSAGE FORMS DAILY;
     Route: 065
  16. ACETAMINOPHEN\BUTABARBITAL\CAFFEINE [Suspect]
     Active Substance: ACETAMINOPHEN\BUTABARBITAL\CAFFEINE
     Dosage: 3 DOSAGE FORMS DAILY;
     Route: 065
     Dates: start: 201511
  17. BETAMETHASONE [Suspect]
     Active Substance: BETAMETHASONE
     Dosage: 12MG/2ML
     Route: 030
     Dates: start: 20161108
  18. RANITIDINE [Suspect]
     Active Substance: RANITIDINE
     Dosage: 2 DOSAGE FORMS DAILY;
     Route: 065
     Dates: start: 201608
  19. NEURONTIN [Suspect]
     Active Substance: GABAPENTIN
     Dosage: 800 MILLIGRAM DAILY;
     Route: 065
  20. ZANTAC [Suspect]
     Active Substance: RANITIDINE HYDROCHLORIDE
     Dosage: 150 MILLIGRAM DAILY;
     Route: 048
     Dates: start: 20161108
  21. KLONOPIN [Suspect]
     Active Substance: CLONAZEPAM
     Dosage: SUSPECT MEDICATION WAS TAKEN BY FATHER
     Route: 050
  22. KLONOPIN [Suspect]
     Active Substance: CLONAZEPAM
     Route: 065
  23. XANAX [Suspect]
     Active Substance: ALPRAZOLAM
     Dosage: SUSPECT MEDICATION WAS TAKEN BY FATHER
     Route: 050
  24. VALIUM [Suspect]
     Active Substance: DIAZEPAM
     Dosage: SUSPECT MEDICATION WAS TAKEN BY FATHER
     Route: 050

REACTIONS (21)
  - Oligohydramnios [Recovered/Resolved]
  - Gestational hypertension [Recovered/Resolved]
  - Nausea [Unknown]
  - Oedema peripheral [Unknown]
  - Vaginal haemorrhage [Recovered/Resolved]
  - Abortion threatened [Recovered/Resolved]
  - Drug abuse [Unknown]
  - Premature labour [Recovered/Resolved]
  - Dyspnoea [Unknown]
  - Vaginal discharge [Recovered/Resolved]
  - Back pain [Recovered/Resolved]
  - Dysuria [Recovered/Resolved]
  - Vulvovaginal candidiasis [Not Recovered/Not Resolved]
  - Headache [Unknown]
  - Vomiting [Unknown]
  - Bacterial vaginosis [Not Recovered/Not Resolved]
  - Treatment noncompliance [Unknown]
  - Maternal exposure during pregnancy [Unknown]
  - Maternal exposure during breast feeding [Unknown]
  - Paternal exposure during pregnancy [Unknown]
  - Live birth [Unknown]

NARRATIVE: CASE EVENT DATE: 20160101
